FAERS Safety Report 14573236 (Version 2)
Quarter: 2018Q1

REPORT INFORMATION
  Report Type: Other
  Country: US (occurrence: US)
  Receive Date: 20180226
  Receipt Date: 20180228
  Transmission Date: 20180509
  Serious: Yes (Death)
  Sender: FDA-Public Use
  Company Number: US-LEADIANT BIOSCIENCES INC-2018STPI000105

PATIENT
  Age: 44 Year
  Sex: Female

DRUGS (1)
  1. MATULANE [Suspect]
     Active Substance: PROCARBAZINE HYDROCHLORIDE
     Indication: HODGKIN^S DISEASE
     Dosage: 150 MG FOR 14 DYAS OF EACH CYCLE
     Route: 048
     Dates: start: 20171205

REACTIONS (1)
  - Death [Fatal]

NARRATIVE: CASE EVENT DATE: 20180107
